FAERS Safety Report 9207727 (Version 2)
Quarter: 2013Q2

REPORT INFORMATION
  Report Type: Report from Study
  Country: JP (occurrence: JP)
  Receive Date: 20130403
  Receipt Date: 20130625
  Transmission Date: 20140414
  Serious: Yes (Hospitalization)
  Sender: FDA-Public Use
  Company Number: JP-ROCHE-1174817

PATIENT
  Age: 79 Year
  Sex: Female

DRUGS (22)
  1. CONIEL [Concomitant]
     Route: 048
     Dates: start: 20120308, end: 20120611
  2. CONIEL [Concomitant]
     Route: 048
     Dates: start: 20120612
  3. REMITCH [Concomitant]
     Route: 048
  4. DAIO-KANZO-TO [Concomitant]
     Route: 048
  5. KETOPROFEN [Concomitant]
     Route: 061
     Dates: start: 20120105
  6. TRAMACET [Concomitant]
     Route: 048
     Dates: start: 20120218, end: 20120410
  7. CELECOX [Concomitant]
     Route: 048
     Dates: start: 20120218, end: 20120223
  8. METHOXY POLYETHYLENE GLYCOL-EPOETIN BETA [Suspect]
     Indication: NEPHROGENIC ANAEMIA
     Route: 042
     Dates: start: 20111206, end: 20120417
  9. METHOXY POLYETHYLENE GLYCOL-EPOETIN BETA [Suspect]
     Indication: NEPHROGENIC ANAEMIA
     Route: 042
     Dates: start: 20120501
  10. FESIN [Concomitant]
     Route: 042
     Dates: start: 20111020, end: 20120322
  11. FESIN [Concomitant]
     Route: 042
     Dates: start: 20121004, end: 20121129
  12. KASHIWADOL [Concomitant]
     Indication: BACK PAIN
     Route: 042
  13. GLUCOSE [Concomitant]
     Route: 042
     Dates: start: 20120322, end: 20120515
  14. NEOAMIYU [Concomitant]
     Indication: PROPHYLAXIS
     Route: 041
     Dates: start: 20120322, end: 20120731
  15. VITAMEDIN (JAPAN) [Concomitant]
     Indication: PROPHYLAXIS
     Route: 042
     Dates: start: 20120322, end: 20120515
  16. FLAVITAN [Concomitant]
     Indication: PROPHYLAXIS
     Route: 042
     Dates: start: 20120322, end: 20120512
  17. INTRALIPOS [Concomitant]
     Indication: PROPHYLAXIS
     Route: 042
     Dates: start: 20120419, end: 20120531
  18. STOGAR [Concomitant]
     Indication: PROPHYLAXIS
     Dosage: FORM:POR
     Route: 048
  19. POLARAMINE [Concomitant]
     Dosage: FORM:POR
     Route: 048
  20. ADALAT CR [Concomitant]
     Dosage: FORM:POR
     Route: 048
  21. MINIPRESS [Concomitant]
     Dosage: FORM:POR
     Route: 048
  22. CONIEL [Concomitant]
     Route: 048
     Dates: end: 20120307

REACTIONS (9)
  - Gastritis [Unknown]
  - Back pain [Recovering/Resolving]
  - Vomiting [Recovered/Resolved]
  - Diarrhoea [Recovered/Resolved]
  - Decreased appetite [Recovered/Resolved]
  - Hypertensive encephalopathy [Recovered/Resolved]
  - Enteritis infectious [Unknown]
  - Hypertension [Unknown]
  - Depressed mood [Unknown]
